FAERS Safety Report 8758589 (Version 1)
Quarter: 2012Q4

REPORT INFORMATION
  Report Type: Spontaneous
  Country: US (occurrence: None)
  Receive Date: 20120828
  Receipt Date: 20120828
  Transmission Date: 20130627
  Serious: No
  Sender: FDA-Public Use
  Company Number: None

PATIENT
  Sex: Male

DRUGS (2)
  1. PEGASYS 180MCG/0.5ML GENENTECH [Suspect]
     Route: 058
     Dates: start: 20120426, end: 20120822
  2. RIBAVIRIN [Suspect]
     Dates: start: 20120426, end: 20120822

REACTIONS (3)
  - Dyspnoea [None]
  - Fatigue [None]
  - Disturbance in attention [None]
